FAERS Safety Report 9912756 (Version 1)
Quarter: 2014Q1

REPORT INFORMATION
  Report Type: Spontaneous
  Country: US (occurrence: None)
  Receive Date: 20140218
  Receipt Date: 20140218
  Transmission Date: 20141002
  Serious: Yes (Life-Threatening, Hospitalization, Disabling)
  Sender: FDA-Public Use
  Company Number: None

PATIENT
  Age: 22 Year
  Sex: Female
  Weight: 46.27 kg

DRUGS (1)
  1. TRI- SPRINTEC [Suspect]
     Indication: CONTRACEPTION
     Dosage: 1 PILL ONCE DAILY
     Route: 048

REACTIONS (2)
  - Cerebral thrombosis [None]
  - Cerebrovascular accident [None]
